FAERS Safety Report 22533822 (Version 1)
Quarter: 2023Q2

REPORT INFORMATION
  Report Type: Report from Study
  Country: AR (occurrence: AR)
  Receive Date: 20230608
  Receipt Date: 20230608
  Transmission Date: 20230722
  Serious: Yes (Other)
  Sender: FDA-Public Use
  Company Number: AR-ABBVIE-5280047

PATIENT
  Age: 40 Year
  Sex: Female

DRUGS (1)
  1. HUMIRA [Suspect]
     Active Substance: ADALIMUMAB
     Indication: Rheumatoid arthritis
     Dosage: FORM STRENGTH: 40MG?LAST ADMIN DATE WAS 2023
     Route: 058
     Dates: start: 20230215

REACTIONS (4)
  - Ventricular tachycardia [Not Recovered/Not Resolved]
  - Stress [Not Recovered/Not Resolved]
  - Rash [Recovering/Resolving]
  - Ventricular extrasystoles [Not Recovered/Not Resolved]

NARRATIVE: CASE EVENT DATE: 20230301
